FAERS Safety Report 11438064 (Version 1)
Quarter: 2015Q3

REPORT INFORMATION
  Report Type: Spontaneous
  Country: CN (occurrence: CN)
  Receive Date: 20150831
  Receipt Date: 20150831
  Transmission Date: 20151125
  Serious: Yes (Other)
  Sender: FDA-Public Use
  Company Number: CN-ABBVIE-15P-035-1454118-00

PATIENT
  Age: 5 Year
  Sex: Male

DRUGS (1)
  1. DEPAKINE (VALPROATE SODIUM) [Suspect]
     Active Substance: VALPROATE SODIUM
     Indication: EPILEPSY
     Route: 048

REACTIONS (3)
  - Drug resistance [Unknown]
  - Apathy [Unknown]
  - Epilepsy [Recovered/Resolved]
